FAERS Safety Report 5849834-7 (Version None)
Quarter: 2008Q3

REPORT INFORMATION
  Report Type: 
  Country: None (occurrence: None)
  Receive Date: 20080731
  Receipt Date: 20080603
  Transmission Date: 20090109
  Serious: No
  Sender: FDA-Public Use
  Company Number: US200806000876

PATIENT
  Age: 65 Year
  Sex: Female
  Weight: 69.8 kg

DRUGS (9)
  1. BYETTA [Suspect]
     Indication: TYPE 2 DIABETES MELLITUS
     Dosage: 5 U, 2/D, SUBCUTANEOUS
     Route: 058
     Dates: start: 20080301
  2. OMEPRAZOLE [Concomitant]
  3. AMLOPIN (AMLODIPINE BESILATE) [Concomitant]
  4. ATENOLOL [Concomitant]
  5. LORAZEPAM [Concomitant]
  6. ATACAND [Concomitant]
  7. LIPITOR [Concomitant]
  8. METFORMIN HCL [Concomitant]
  9. GLYBURIDE [Concomitant]

REACTIONS (9)
  - BLOOD GLUCOSE DECREASED [None]
  - BLOOD GLUCOSE INCREASED [None]
  - CONTUSION [None]
  - COUGH [None]
  - NASOPHARYNGITIS [None]
  - POLLAKIURIA [None]
  - RHINORRHOEA [None]
  - THIRST [None]
  - WEIGHT DECREASED [None]
